FAERS Safety Report 14490432 (Version 1)
Quarter: 2018Q1

REPORT INFORMATION
  Report Type: Report from Study
  Country: IE (occurrence: IE)
  Receive Date: 20180206
  Receipt Date: 20180206
  Transmission Date: 20180509
  Serious: Yes (Other)
  Sender: FDA-Public Use
  Company Number: IE-ROCHE-2065687

PATIENT
  Sex: Female

DRUGS (2)
  1. DIAZEPAM. [Suspect]
     Active Substance: DIAZEPAM
     Indication: PREMEDICATION
     Route: 048
  2. ETOMIDATE. [Suspect]
     Active Substance: ETOMIDATE
     Indication: ANAESTHESIA
     Route: 065

REACTIONS (6)
  - Vomiting [Unknown]
  - Apnoea [Unknown]
  - Cough [Unknown]
  - Laryngospasm [Unknown]
  - Hiccups [Unknown]
  - Hypotension [Unknown]
